FAERS Safety Report 5597108-4 (Version None)
Quarter: 2008Q1

REPORT INFORMATION
  Report Type: 
  Country: None (occurrence: None)
  Receive Date: 20080121
  Receipt Date: 20080108
  Transmission Date: 20080703
  Serious: Yes (Hospitalization)
  Sender: FDA-Public Use
  Company Number: NL-WYE-H02024708

PATIENT
  Age: 44 Year
  Sex: Female

DRUGS (1)
  1. IBUPROFEN [Suspect]
     Indication: DYSMENORRHOEA
     Dosage: EIGHT 400 MG TABLETS ON 1 DAY
     Route: 048
     Dates: start: 20060301

REACTIONS (6)
  - ANAEMIA [None]
  - FOCAL SEGMENTAL GLOMERULOSCLEROSIS [None]
  - HAEMOLYTIC URAEMIC SYNDROME [None]
  - OVERDOSE [None]
  - THROMBOTIC MICROANGIOPATHY [None]
  - VAGINAL HAEMORRHAGE [None]
